FAERS Safety Report 10439406 (Version 2)
Quarter: 2014Q4

REPORT INFORMATION
  Report Type: Spontaneous
  Country: JP (occurrence: None)
  Receive Date: 20140905
  Receipt Date: 20141003
  Transmission Date: 20150528
  Serious: Yes (Death)
  Sender: FDA-Public Use
  Company Number: JP-016892

PATIENT
  Age: 79 Year
  Sex: Male

DRUGS (3)
  1. DEGARELIX [Suspect]
     Active Substance: DEGARELIX
     Indication: PROSTATE CANCER METASTATIC
     Route: 058
     Dates: start: 20130611, end: 20130611
  2. TAXOTERE [Concomitant]
     Active Substance: DOCETAXEL
  3. ENDOCRINE THERAPY [Concomitant]

REACTIONS (2)
  - Cerebral haemorrhage [None]
  - Haematoma [None]

NARRATIVE: CASE EVENT DATE: 20140408
